FAERS Safety Report 25871787 (Version 2)
Quarter: 2025Q4

REPORT INFORMATION
  Report Type: Spontaneous
  Country: BR (occurrence: BR)
  Receive Date: 20251001
  Receipt Date: 20251007
  Transmission Date: 20260117
  Serious: Yes (Death, Other)
  Sender: BRISTOL-MYERS SQUIBB COMPANY
  Company Number: BR-BRISTOL-MYERS SQUIBB COMPANY-2025-134194

PATIENT

DRUGS (2)
  1. OPDIVO [Suspect]
     Active Substance: NIVOLUMAB
     Indication: Product used for unknown indication
     Dosage: 100MG/10ML
  2. OPDIVO [Suspect]
     Active Substance: NIVOLUMAB
     Dosage: 40MG/4ML

REACTIONS (2)
  - Product storage error [Unknown]
  - Death [Fatal]
